FAERS Safety Report 26092044 (Version 1)
Quarter: 2025Q4

REPORT INFORMATION
  Report Type: Spontaneous
  Country: US (occurrence: US)
  Receive Date: 20251126
  Receipt Date: 20251126
  Transmission Date: 20260117
  Serious: No
  Sender: ELI LILLY AND COMPANY
  Company Number: US-ELI_LILLY_AND_COMPANY-US202511028326

PATIENT
  Age: 67 Year
  Sex: Female

DRUGS (1)
  1. ZEPBOUND [Suspect]
     Active Substance: TIRZEPATIDE
     Indication: Weight control
     Dosage: 2.5 MG, ONCE EVERY TWO WEEKS
     Route: 058
     Dates: start: 20250725

REACTIONS (3)
  - Increased appetite [Unknown]
  - Food craving [Unknown]
  - Off label use [Unknown]

NARRATIVE: CASE EVENT DATE: 20250101
